FAERS Safety Report 10920887 (Version 3)
Quarter: 2015Q2

REPORT INFORMATION
  Report Type: Spontaneous
  Country: US (occurrence: US)
  Receive Date: 20150317
  Receipt Date: 20150422
  Transmission Date: 20150821
  Serious: No
  Sender: FDA-Public Use
  Company Number: US-PFIZER INC-2015090672

PATIENT
  Age: 63 Year
  Sex: Female

DRUGS (2)
  1. NEURONTIN [Suspect]
     Active Substance: GABAPENTIN
     Indication: FIBROMYALGIA
     Dosage: UNK
  2. NEURONTIN [Interacting]
     Active Substance: GABAPENTIN
     Dosage: 10 MG, UNK
     Dates: start: 2009

REACTIONS (5)
  - Drug hypersensitivity [Recovered/Resolved]
  - Vomiting [Unknown]
  - Malaise [Unknown]
  - Nausea [Unknown]
  - Drug interaction [Unknown]
